FAERS Safety Report 9568858 (Version 1)
Quarter: 2013Q3

REPORT INFORMATION
  Report Type: Spontaneous
  Country: US (occurrence: US)
  Receive Date: 20130930
  Receipt Date: 20130930
  Transmission Date: 20140515
  Serious: No
  Sender: FDA-Public Use
  Company Number: US-AMGEN-USASP2013060037

PATIENT
  Age: 31 Year
  Sex: Male

DRUGS (1)
  1. ENBREL [Suspect]
     Indication: ANKYLOSING SPONDYLITIS
     Dosage: UNK
     Route: 065
     Dates: start: 20070623

REACTIONS (6)
  - Influenza like illness [Not Recovered/Not Resolved]
  - Throat irritation [Not Recovered/Not Resolved]
  - Injection site pruritus [Unknown]
  - Injection site rash [Unknown]
  - Nasopharyngitis [Not Recovered/Not Resolved]
  - Infection [Unknown]
